FAERS Safety Report 6939826-9 (Version None)
Quarter: 2010Q3

REPORT INFORMATION
  Report Type: 
  Country: None (occurrence: None)
  Receive Date: 20100825
  Receipt Date: 20100816
  Transmission Date: 20110219
  Serious: No
  Sender: FDA-Public Use
  Company Number: US-BIOGENIDEC-2010BI028721

PATIENT
  Sex: Female

DRUGS (1)
  1. AVONEX [Suspect]
     Indication: MULTIPLE SCLEROSIS
     Route: 030
     Dates: start: 20010105

REACTIONS (4)
  - FEELING ABNORMAL [None]
  - HYPERAESTHESIA [None]
  - MENTAL IMPAIRMENT [None]
  - MUSCLE SPASMS [None]
